FAERS Safety Report 14499957 (Version 2)
Quarter: 2018Q1

REPORT INFORMATION
  Report Type: Spontaneous
  Country: GB (occurrence: GB)
  Receive Date: 20180207
  Receipt Date: 20180328
  Transmission Date: 20180509
  Serious: Yes (Death, Other)
  Sender: FDA-Public Use
  Company Number: GB-MYLANLABS-2018M1007746

PATIENT
  Age: 15 Year
  Sex: Female

DRUGS (3)
  1. CARBAMAZEPINE. [Suspect]
     Active Substance: CARBAMAZEPINE
     Indication: EPILEPSY
  2. CARBAMAZEPINE. [Suspect]
     Active Substance: CARBAMAZEPINE
     Indication: SEIZURE
     Dosage: UNK
  3. CARBAMAZEPINE. [Suspect]
     Active Substance: CARBAMAZEPINE
     Indication: FRONTAL LOBE EPILEPSY

REACTIONS (8)
  - Fall [Fatal]
  - Fatigue [Fatal]
  - Cardiac disorder [Unknown]
  - Dizziness [Fatal]
  - Myocarditis [Fatal]
  - Gait inability [Fatal]
  - Nausea [Fatal]
  - Seizure [Fatal]
